FAERS Safety Report 17652413 (Version 1)
Quarter: 2020Q2

REPORT INFORMATION
  Report Type: Spontaneous
  Country: GB (occurrence: GB)
  Receive Date: 20200409
  Receipt Date: 20200409
  Transmission Date: 20200713
  Serious: Yes (Hospitalization)
  Sender: FDA-Public Use
  Company Number: GB-TEVA-2020-GB-1221138

PATIENT
  Age: 83 Year
  Sex: Female

DRUGS (21)
  1. CANDESARTAN. [Suspect]
     Active Substance: CANDESARTAN
     Dosage: MORNING 4 MG
     Route: 048
     Dates: end: 20200215
  2. TIOTROPIUM [Concomitant]
     Active Substance: TIOTROPIUM
     Dosage: MORNING 18 MICROGRAM
     Route: 050
  3. FUROSEMIDE. [Suspect]
     Active Substance: FUROSEMIDE
     Dosage: MORNING 40 MG
     Route: 048
     Dates: end: 20200215
  4. COCODAMOL [Suspect]
     Active Substance: ACETAMINOPHEN\CODEINE PHOSPHATE
     Dosage: ONE OR TWO -  FOUR TIMES A DAY. 30MG/500MG
     Route: 048
     Dates: end: 20200215
  5. CARBOCISTEINE [Concomitant]
     Active Substance: CARBOCYSTEINE
     Dosage: 2250 MG
     Route: 048
  6. ALENDRONIC ACID [Concomitant]
     Active Substance: ALENDRONIC ACID
     Dosage: ON WEDNESDAYS 70 MG
     Route: 048
  7. LEVOTHYROXINE. [Concomitant]
     Active Substance: LEVOTHYROXINE
     Dosage: MORNING 100 MICROGRAM
     Route: 048
  8. SALMETEROL [Concomitant]
     Active Substance: SALMETEROL
     Dosage: 25MICROGRAMS/DOSE 2 DOSAGE FORMS
     Route: 050
  9. GLICLAZIDE [Suspect]
     Active Substance: GLICLAZIDE
     Dosage: 80MG - MORNING AND 40MG - AT TEATIME
     Route: 048
     Dates: end: 20200215
  10. ATORVASTATIN [Concomitant]
     Active Substance: ATORVASTATIN
     Dosage: NIGHT 40 MG
     Route: 048
  11. DIGOXIN. [Concomitant]
     Active Substance: DIGOXIN
     Dosage: MORNING 125 MICROGRAM
     Route: 048
     Dates: start: 20200215, end: 20200219
  12. FLUTICASONE. [Concomitant]
     Active Substance: FLUTICASONE
     Dosage: 250MICROGRAMS/DOSE 2 DOSAGE FORMS
     Route: 050
  13. TRAVOPROST. [Concomitant]
     Active Substance: TRAVOPROST
     Dosage: ONE DROP BOTH EYES AT NIGHT. 40MICROGRAMS/ML 2 GTT
     Route: 050
  14. APIXABAN [Concomitant]
     Active Substance: APIXABAN
     Dosage: 10 MG
     Route: 048
  15. DORZOLAMIDE [Concomitant]
     Active Substance: DORZOLAMIDE
     Dosage: ONE DROP IN BOTH EYES TWICE A DAY. 20MG/ML 4 GTT
     Route: 050
  16. SALBUTAMOL [Concomitant]
     Active Substance: ALBUTEROL
     Dosage: ONE OR TWO PUFFS  - 100MICROGRAMS/DOSE
     Route: 050
  17. METFORMIN [Suspect]
     Active Substance: METFORMIN HYDROCHLORIDE
     Dosage: 1000 MG
     Route: 048
     Dates: end: 20200215
  18. PIOGLITAZONE. [Suspect]
     Active Substance: PIOGLITAZONE
     Dosage: MORNING 15 MG
     Route: 048
     Dates: end: 20200215
  19. SERTRALINE [Suspect]
     Active Substance: SERTRALINE HYDROCHLORIDE
     Dosage: 50 MG
     Route: 048
  20. BISOPROLOL [Concomitant]
     Active Substance: BISOPROLOL
     Dosage: MORNING 10 MG
     Route: 048
  21. ADCAL-D3 [Concomitant]
     Active Substance: CALCIUM CARBONATE\CHOLECALCIFEROL
     Dosage: 750MG/200UNIT 4 DOSAGE FORMS
     Route: 048

REACTIONS (7)
  - Confusional state [Recovered/Resolved]
  - Urine output decreased [Unknown]
  - Constipation [Recovered/Resolved]
  - Acute kidney injury [Recovered/Resolved]
  - Dehydration [Unknown]
  - Hyponatraemia [Recovered/Resolved]
  - Hypoglycaemia [Recovering/Resolving]

NARRATIVE: CASE EVENT DATE: 20200215
